FAERS Safety Report 6055899-2 (Version None)
Quarter: 2009Q1

REPORT INFORMATION
  Report Type: 
  Country: None (occurrence: None)
  Receive Date: 20090128
  Receipt Date: 20090115
  Transmission Date: 20090719
  Serious: Yes (Other)
  Sender: FDA-Public Use
  Company Number: PHHY2009BR01657

PATIENT
  Sex: Female

DRUGS (4)
  1. CODATEN [Suspect]
     Indication: POSTOPERATIVE CARE
     Dosage: 50 MG, Q8H
     Route: 048
  2. CODATEN [Suspect]
     Dosage: 50 MG, Q12H
     Route: 048
     Dates: start: 20080301
  3. CARBAMAZEPINE [Concomitant]
     Indication: BONE PAIN
     Dosage: 1 TABLET IN MORNING AND 2 TABLETS IN NIGHT
  4. RIVOTRIL [Concomitant]
     Indication: SLEEP DISORDER
     Dosage: 2MG

REACTIONS (5)
  - FAECES HARD [None]
  - HAEMOPTYSIS [None]
  - INFREQUENT BOWEL MOVEMENTS [None]
  - PAINFUL DEFAECATION [None]
  - SOMNOLENCE [None]
